FAERS Safety Report 4519607-6 (Version None)
Quarter: 2004Q4

REPORT INFORMATION
  Report Type: 
  Country: None (occurrence: None)
  Receive Date: 20041203
  Receipt Date: 20041120
  Transmission Date: 20050328
  Serious: Yes (Other)
  Sender: FDA-Public Use
  Company Number: 2004098429

PATIENT
  Age: 24 Year
  Sex: Female
  Weight: 85 kg

DRUGS (4)
  1. SINUTAB II (PARACETAMOL, PSEUDOEPHEDRINE) [Suspect]
     Indication: NASOPHARYNGITIS
     Dosage: 500 MG/30 MG, 3 TABLETS TOTAL, ORAL
     Route: 048
     Dates: start: 20041111, end: 20041112
  2. BROMHEXINE HYDROCHLORIDE (BROMHEXINE HYDROCHLORIDE) [Concomitant]
  3. DIANE (CYPROTERONE ACETATE, ETHINYLESTRADIOL) [Concomitant]
  4. LEVOTHYROXINE SODIUM [Concomitant]

REACTIONS (2)
  - DERMATITIS ALLERGIC [None]
  - MENTAL DISORDER [None]
